FAERS Safety Report 6086202-X (Version None)
Quarter: 2009Q1

REPORT INFORMATION
  Report Type: 
  Country: None (occurrence: None)
  Receive Date: 20090220
  Receipt Date: 20090211
  Transmission Date: 20090719
  Serious: Yes (Hospitalization, Other)
  Sender: FDA-Public Use
  Company Number: US-AMGEN-US328646

PATIENT
  Sex: Male
  Weight: 138 kg

DRUGS (25)
  1. EPOGEN [Suspect]
     Indication: RENAL FAILURE CHRONIC
     Route: 065
     Dates: start: 20080226, end: 20081201
  2. PROTONIX [Concomitant]
  3. FUROSEMIDE [Concomitant]
  4. ALLOPURINOL [Concomitant]
  5. TRAMADOL HCL [Concomitant]
  6. ADVAIR HFA [Concomitant]
     Route: 055
  7. UNSPECIFIED ANTIBIOTIC [Concomitant]
  8. SODIUM CHLORIDE [Concomitant]
     Route: 045
  9. MIRAPEX [Concomitant]
  10. MUCINEX [Concomitant]
  11. DOCUSATE SODIUM [Concomitant]
  12. BACTRIM DS [Concomitant]
  13. NITROGLYCERIN [Concomitant]
  14. METOPROLOL TARTRATE [Concomitant]
  15. HYDROCODONE BITARTRATE [Concomitant]
  16. COLCHICINE [Concomitant]
  17. INSULIN ASPART [Concomitant]
  18. MIRALAX [Concomitant]
  19. ALBUTEROL [Concomitant]
     Route: 055
  20. CORTISONE [Concomitant]
  21. RENAGEL [Concomitant]
  22. ZOLPIDEM [Concomitant]
  23. ACETAMINOPHEN [Concomitant]
  24. LANTUS [Concomitant]
  25. HYDROXYZINE [Concomitant]

REACTIONS (2)
  - APLASIA PURE RED CELL [None]
  - CELLULITIS [None]
